FAERS Safety Report 8543415-2 (Version None)
Quarter: 2012Q3

REPORT INFORMATION
  Report Type: 
  Country: None (occurrence: None)
  Receive Date: 20120727
  Receipt Date: 20120724
  Transmission Date: 20120928
  Serious: No
  Sender: FDA-Public Use
  Company Number: US-PFIZER INC-2012179452

PATIENT
  Sex: Female
  Weight: 78.91 kg

DRUGS (8)
  1. FLEXERIL [Suspect]
     Indication: ARTHRALGIA
     Dosage: 10 MG, DAILY
  2. LIPITOR [Suspect]
     Indication: BLOOD CHOLESTEROL INCREASED
     Dosage: 40 MG, DAILY
     Dates: end: 20120201
  3. FLEXERIL [Suspect]
     Indication: PAIN IN EXTREMITY
  4. BENICAR HCT [Concomitant]
     Indication: HYPERTENSION
     Dosage: 20 MG/12.5 MG, DAILY
  5. METFORMIN [Concomitant]
     Indication: GLUCOSE TOLERANCE IMPAIRED
     Dosage: 500 MG, 2X/DAY
  6. FLEXERIL [Suspect]
     Indication: BACK PAIN
  7. NORVASC [Concomitant]
     Indication: HYPERTENSION
     Dosage: 10 MG, DAILY
  8. POTASSIUM CHLORIDE [Concomitant]
     Indication: BLOOD POTASSIUM DECREASED
     Dosage: 10 MEQ, DAILY

REACTIONS (8)
  - BACK PAIN [None]
  - INTERVERTEBRAL DISC DEGENERATION [None]
  - PAIN IN EXTREMITY [None]
  - SOMNOLENCE [None]
  - ARTHRALGIA [None]
  - DYSSTASIA [None]
  - INSOMNIA [None]
  - PARAESTHESIA [None]
